FAERS Safety Report 7262949-4 (Version None)
Quarter: 2011Q1

REPORT INFORMATION
  Report Type: 
  Country: None (occurrence: None)
  Receive Date: 20110130
  Receipt Date: 20101015
  Transmission Date: 20110831
  Serious: No
  Sender: FDA-Public Use
  Company Number: US-ABBOTT-10P-163-0678738-00

PATIENT
  Age: 20 Year
  Sex: Male

DRUGS (4)
  1. HUMIRA [Suspect]
     Indication: PSORIASIS
     Dates: start: 20101001
  2. NAPROXEN [Concomitant]
     Indication: INFLAMMATION
  3. NAPROXEN [Concomitant]
     Indication: PAIN
  4. ZANTAC [Concomitant]
     Indication: GASTRIC DISORDER

REACTIONS (2)
  - INJECTION SITE REACTION [None]
  - INJECTION SITE PAIN [None]
